FAERS Safety Report 7729804-4 (Version None)
Quarter: 2011Q3

REPORT INFORMATION
  Report Type: 
  Country: None (occurrence: None)
  Receive Date: 20110906
  Receipt Date: 20110831
  Transmission Date: 20111222
  Serious: Yes (Other)
  Sender: FDA-Public Use
  Company Number: RU-SANOFI-AVENTIS-2011SA056492

PATIENT
  Age: 71 Year
  Sex: Female

DRUGS (2)
  1. INVESTIGATIONAL DRUG [Suspect]
     Route: 048
     Dates: start: 20110715, end: 20110724
  2. ENOXAPARIN SODIUM [Suspect]
     Route: 065
     Dates: start: 20110715

REACTIONS (1)
  - INTERNATIONAL NORMALISED RATIO INCREASED [None]
